FAERS Safety Report 16222025 (Version 1)
Quarter: 2019Q2

REPORT INFORMATION
  Report Type: Spontaneous
  Country: GB (occurrence: GB)
  Receive Date: 20190422
  Receipt Date: 20190422
  Transmission Date: 20190711
  Serious: Yes (Other)
  Sender: FDA-Public Use
  Company Number: GB-ACCORD-123584

PATIENT
  Age: 6 Decade
  Sex: Male
  Weight: 97 kg

DRUGS (3)
  1. RAMIPRIL. [Suspect]
     Active Substance: RAMIPRIL
     Indication: HYPERTENSION
     Route: 048
     Dates: start: 20160615, end: 20181215
  2. INDAPAMIDE. [Concomitant]
     Active Substance: INDAPAMIDE
  3. CANDESARTAN CILEXETIL. [Suspect]
     Active Substance: CANDESARTAN CILEXETIL
     Indication: HYPERTENSION
     Route: 048
     Dates: start: 20181216, end: 20190128

REACTIONS (2)
  - Eczema weeping [Unknown]
  - Eczema nummular [Not Recovered/Not Resolved]

NARRATIVE: CASE EVENT DATE: 20180404
